FAERS Safety Report 21157621 (Version 1)
Quarter: 2022Q3

REPORT INFORMATION
  Report Type: Spontaneous
  Country: AU (occurrence: AU)
  Receive Date: 20220801
  Receipt Date: 20220801
  Transmission Date: 20221026
  Serious: Yes (Hospitalization, Other)
  Sender: FDA-Public Use
  Company Number: AU-MYLANLABS-2022M1082365

PATIENT
  Age: 40 Year
  Sex: Male

DRUGS (5)
  1. VALPROIC ACID [Suspect]
     Active Substance: VALPROIC ACID
     Indication: Temporal lobe epilepsy
     Dosage: 1 GRAM, BID
     Route: 065
  2. PREGABALIN [Suspect]
     Active Substance: PREGABALIN
     Indication: Temporal lobe epilepsy
     Dosage: 150 MILLIGRAM, BID
     Route: 065
  3. MIRTAZAPINE [Suspect]
     Active Substance: MIRTAZAPINE
     Indication: Temporal lobe epilepsy
     Dosage: 15 MILLIGRAM, HS (NOCTE)
     Route: 065
  4. LACOSAMIDE [Suspect]
     Active Substance: LACOSAMIDE
     Indication: Temporal lobe epilepsy
     Dosage: 200 MILLIGRAM, BID
     Route: 065
  5. ZONISAMIDE [Suspect]
     Active Substance: ZONISAMIDE
     Indication: Temporal lobe epilepsy
     Dosage: 100 MILLIGRAM, BID
     Route: 065

REACTIONS (5)
  - Drug ineffective [Unknown]
  - Behaviour disorder [Unknown]
  - Automatism [Unknown]
  - Seizure [Unknown]
  - Off label use [Unknown]
